FAERS Safety Report 4753221-2 (Version None)
Quarter: 2005Q3

REPORT INFORMATION
  Report Type: 
  Country: None (occurrence: None)
  Receive Date: 20050824
  Receipt Date: 20050804
  Transmission Date: 20060218
  Serious: No
  Sender: FDA-Public Use
  Company Number: USA0508104748

PATIENT
  Age: 54 Year
  Sex: Female
  Weight: 91 kg

DRUGS (8)
  1. CYMBALTA [Suspect]
     Indication: MAJOR DEPRESSION
     Dosage: 150 MG DAY
     Dates: start: 20050301
  2. AMBIEN [Concomitant]
  3. ATENOLOL [Concomitant]
  4. POTASSIUM [Concomitant]
  5. AMOXICILLIN [Concomitant]
  6. VITAMIN B COMPLEX CAP [Concomitant]
  7. LORAZEPAM [Concomitant]
  8. PROVERA [Concomitant]

REACTIONS (4)
  - CONFUSIONAL STATE [None]
  - FATIGUE [None]
  - HEPATIC ENZYME INCREASED [None]
  - PLATELET COUNT INCREASED [None]
